FAERS Safety Report 7983457-9 (Version None)
Quarter: 2011Q4

REPORT INFORMATION
  Report Type: 
  Country: None (occurrence: None)
  Receive Date: 20111215
  Receipt Date: 20111208
  Transmission Date: 20120403
  Serious: Yes (Hospitalization, Other)
  Sender: FDA-Public Use
  Company Number: JP-B.I. PHARMACEUTICALS,INC./RIDGEFIELD-2011-BP-26454NB

PATIENT
  Age: 78 Year
  Sex: Female
  Weight: 44 kg

DRUGS (11)
  1. ZOLPIDEM [Concomitant]
     Dosage: 5 MG
     Route: 065
  2. SUMILU STICK [Concomitant]
     Route: 065
  3. LIPITOR [Concomitant]
     Dosage: 5 MG
     Route: 065
  4. ONEALFA [Concomitant]
     Dosage: 0.5 MCG
     Route: 065
  5. PRECIPITATED CALCIUM CARBONATE [Concomitant]
     Dosage: 500 MG
     Route: 065
  6. PRADAXA [Suspect]
     Indication: ATRIAL FIBRILLATION
     Dosage: 220 MG
     Route: 048
     Dates: start: 20110912, end: 20111115
  7. RISEDRONATE SODIUM [Concomitant]
     Dosage: 17.5 MG
     Route: 065
  8. TRAMADOL HCL [Suspect]
     Indication: SPINAL COLUMN STENOSIS
     Route: 048
     Dates: start: 20111012, end: 20111116
  9. DIGOXIN [Suspect]
     Indication: ATRIAL FIBRILLATION
     Dosage: 0.625 MG
     Route: 065
     Dates: start: 20110912
  10. NORVASC [Concomitant]
     Dosage: 5 MG
     Route: 065
  11. LOXONIN [Concomitant]
     Route: 065

REACTIONS (1)
  - INTERSTITIAL LUNG DISEASE [None]
